FAERS Safety Report 7361103-5 (Version None)
Quarter: 2011Q1

REPORT INFORMATION
  Report Type: 
  Country: None (occurrence: None)
  Receive Date: 20110318
  Receipt Date: 20110316
  Transmission Date: 20110831
  Serious: Yes (Other)
  Sender: FDA-Public Use
  Company Number: CHPA2011US04113

PATIENT
  Age: 55 Year
  Sex: Female
  Weight: 73.469 kg

DRUGS (3)
  1. GAS-X PREVENTION [Suspect]
     Dosage: 2 DF (SOMETIMES TAKE 2 CAPSULES AT A TIME IN A DAY), QD PRN
     Route: 048
     Dates: start: 20101201, end: 20101201
  2. GAS-X PREVENTION [Suspect]
     Dosage: 1 DF, QD PRN
     Route: 048
     Dates: start: 20101201, end: 20101201
  3. GAS-X PREVENTION [Suspect]
     Indication: PROPHYLAXIS
     Dosage: 3 DF (3 CAPSULES AT A TIME IN A DAY), ONCE/SINGLE
     Route: 048
     Dates: start: 20101211, end: 20101211

REACTIONS (5)
  - RETINOPATHY [None]
  - EYE LASER SURGERY [None]
  - VISUAL IMPAIRMENT [None]
  - DRUG INEFFECTIVE [None]
  - INCORRECT DOSE ADMINISTERED [None]
